FAERS Safety Report 11451071 (Version 1)
Quarter: 2015Q3

REPORT INFORMATION
  Report Type: Spontaneous
  Country: US (occurrence: US)
  Receive Date: 20150903
  Receipt Date: 20150903
  Transmission Date: 20151125
  Serious: No
  Sender: FDA-Public Use
  Company Number: US-ROCHE-1057344

PATIENT
  Sex: Female
  Weight: 94.07 kg

DRUGS (3)
  1. COPEGUS [Suspect]
     Active Substance: RIBAVIRIN
     Indication: HEPATITIS C
     Dosage: 2 PILL IN MORNING AND 1 PILL IN EVENING
     Route: 048
     Dates: start: 20120228
  2. PEGASYS [Suspect]
     Active Substance: PEGINTERFERON ALFA-2A
     Indication: HEPATITIS C
     Route: 058
     Dates: start: 20120228
  3. INCIVEK [Suspect]
     Active Substance: TELAPREVIR
     Indication: HEPATITIS C
     Route: 048
     Dates: start: 20120228

REACTIONS (10)
  - Fatigue [Unknown]
  - Neutropenia [Unknown]
  - Leukopenia [Unknown]
  - Rash [Unknown]
  - Rectal haemorrhage [Unknown]
  - Anaemia [Unknown]
  - Headache [Unknown]
  - T-lymphocyte count decreased [Unknown]
  - Diarrhoea [Unknown]
  - Rheumatoid arthritis [Unknown]
